FAERS Safety Report 4716011-2 (Version None)
Quarter: 2005Q3

REPORT INFORMATION
  Report Type: 
  Country: None (occurrence: None)
  Receive Date: 20050718
  Receipt Date: 20050712
  Transmission Date: 20060218
  Serious: Yes (Death, Hospitalization)
  Sender: FDA-Public Use
  Company Number: FR-GLAXOSMITHKLINE-B0387660A

PATIENT
  Age: 77 Year
  Sex: Female

DRUGS (9)
  1. AUGMENTIN '125' [Suspect]
     Indication: EAR INFECTION
     Route: 048
     Dates: start: 20050301
  2. CLAMOXYL [Suspect]
     Indication: GASTROINTESTINAL INFECTION
     Route: 048
     Dates: start: 20050401, end: 20050101
  3. OFLOCET [Suspect]
     Indication: GASTROINTESTINAL INFECTION
     Route: 048
     Dates: start: 20050101
  4. LEVOTHYROX [Concomitant]
     Indication: HORMONE REPLACEMENT THERAPY
     Route: 065
  5. TERCIAN [Concomitant]
     Route: 065
  6. LAROXYL [Concomitant]
     Route: 065
  7. TEMESTA [Concomitant]
     Route: 065
  8. MEPRONIZINE [Concomitant]
     Route: 065
  9. PRACTAZIN [Concomitant]
     Route: 065

REACTIONS (14)
  - CLOSTRIDIUM COLITIS [None]
  - COLITIS [None]
  - DIARRHOEA [None]
  - DRUG INEFFECTIVE [None]
  - FAECES DISCOLOURED [None]
  - HYPERTHERMIA [None]
  - HYPOKALAEMIA [None]
  - HYPONATRAEMIA [None]
  - HYPOPROTEINAEMIA [None]
  - HYPOTENSION [None]
  - ILEITIS [None]
  - INFLAMMATION [None]
  - MALAISE [None]
  - PERITONEAL EFFUSION [None]
